FAERS Safety Report 15614092 (Version 3)
Quarter: 2018Q4

REPORT INFORMATION
  Report Type: Spontaneous
  Country: ES (occurrence: ES)
  Receive Date: 20181113
  Receipt Date: 20181116
  Transmission Date: 20190205
  Serious: Yes (Disabling, Other)
  Sender: FDA-Public Use
  Company Number: ALCN1999ES001566

PATIENT
  Age: 30 Year
  Sex: Male

DRUGS (3)
  1. TETRACAINE HCL/NAPHAZOLINE [Suspect]
     Active Substance: NAPHAZOLINE\TETRACAINE
     Indication: PRODUCT USED FOR UNKNOWN INDICATION
     Dosage: UNK
     Route: 047
  2. GENTAMICIN. [Suspect]
     Active Substance: GENTAMICIN
     Indication: PROPHYLAXIS
     Dosage: UNK
     Route: 047
  3. VOLTAREN [Suspect]
     Active Substance: DICLOFENAC SODIUM
     Indication: PRODUCT USED FOR UNKNOWN INDICATION
     Route: 047

REACTIONS (2)
  - Eye infection [Unknown]
  - Blindness [Not Recovered/Not Resolved]
